FAERS Safety Report 4678182-6 (Version None)
Quarter: 2005Q2

REPORT INFORMATION
  Report Type: 
  Country: None (occurrence: None)
  Receive Date: 20050527
  Receipt Date: 20050517
  Transmission Date: 20051028
  Serious: Yes (Hospitalization)
  Sender: FDA-Public Use
  Company Number: HQWYE788619MAY05

PATIENT

DRUGS (2)
  1. INDERAL LA [Suspect]
     Indication: OESOPHAGEAL VARICES HAEMORRHAGE
     Dosage: REDUCED RESTING PULSES }=25% FROM BASELINE (80 MG DAILY INITIALLY)
  2. INDERAL LA [Suspect]
     Indication: PROPHYLAXIS
     Dosage: REDUCED RESTING PULSES }=25% FROM BASELINE (80 MG DAILY INITIALLY)

REACTIONS (3)
  - DRUG INEFFECTIVE [None]
  - HEART RATE DECREASED [None]
  - OESOPHAGEAL VARICES HAEMORRHAGE [None]
